FAERS Safety Report 6769980-3 (Version None)
Quarter: 2010Q2

REPORT INFORMATION
  Report Type: 
  Country: None (occurrence: None)
  Receive Date: 20100615
  Receipt Date: 20100607
  Transmission Date: 20101027
  Serious: Yes (Hospitalization)
  Sender: FDA-Public Use
  Company Number: FR-JNJFOC-20100603901

PATIENT
  Age: 89 Year
  Sex: Male

DRUGS (10)
  1. LOPERAMIDE [Suspect]
     Indication: DRUG USE FOR UNKNOWN INDICATION
     Route: 065
  2. ALDACTAZIDE [Suspect]
     Indication: HYPERTENSION
     Route: 065
  3. CAPTOPRIL [Suspect]
     Indication: HYPERTENSION
     Route: 048
  4. LASIX [Suspect]
     Indication: HYPERTENSION
     Route: 048
  5. VOLTAREN [Suspect]
     Indication: DRUG USE FOR UNKNOWN INDICATION
     Route: 065
  6. NEXIUM [Suspect]
     Indication: DRUG USE FOR UNKNOWN INDICATION
     Route: 065
  7. HYZAAR [Suspect]
     Indication: DRUG USE FOR UNKNOWN INDICATION
     Route: 065
  8. STABLON [Suspect]
     Indication: DRUG USE FOR UNKNOWN INDICATION
     Route: 065
  9. VASTAREL [Suspect]
     Indication: DRUG USE FOR UNKNOWN INDICATION
     Route: 065
  10. DIGOXIN [Suspect]
     Indication: DRUG USE FOR UNKNOWN INDICATION
     Route: 065

REACTIONS (2)
  - HYPERKALAEMIA [None]
  - RENAL FAILURE ACUTE [None]
